FAERS Safety Report 6928975-7 (Version None)
Quarter: 2010Q3

REPORT INFORMATION
  Report Type: 
  Country: None (occurrence: None)
  Receive Date: 20100817
  Receipt Date: 20100805
  Transmission Date: 20110219
  Serious: Yes (Hospitalization)
  Sender: FDA-Public Use
  Company Number: ES-ELI_LILLY_AND_COMPANY-ES201008001669

PATIENT
  Sex: Female

DRUGS (3)
  1. FORTEO [Suspect]
     Indication: OSTEOPOROSIS
     Dosage: 20 UG, DAILY (1/D)
     Route: 058
     Dates: start: 20100703
  2. ZANTAC [Concomitant]
     Dosage: UNK, 2/D
     Route: 048
  3. OMEPRAZOLE [Concomitant]
     Dosage: UNK, DAILY (1/D)
     Route: 048

REACTIONS (3)
  - FALL [None]
  - JOINT DISLOCATION [None]
  - UPPER LIMB FRACTURE [None]
